FAERS Safety Report 6196013-2 (Version None)
Quarter: 2009Q2

REPORT INFORMATION
  Report Type: 
  Country: None (occurrence: None)
  Receive Date: 20090520
  Receipt Date: 20040729
  Transmission Date: 20091009
  Serious: Yes (Death, Hospitalization)
  Sender: FDA-Public Use
  Company Number: NL-ROCHE-597581

PATIENT
  Sex: Female

DRUGS (2)
  1. CAPECITABINE [Suspect]
     Indication: COLORECTAL CANCER
     Dosage: AS PER PROTOCOL:1250 MG/M2 GIVEN B.I.D ON DAY1-14 PER 3 WEEKS,DOSE REPORTED AS 3350
     Route: 048
     Dates: start: 20030704, end: 20030717
  2. OXAZEPAM [Concomitant]

REACTIONS (4)
  - ANOREXIA [None]
  - DIARRHOEA [None]
  - MELAENA [None]
  - MOUTH ULCERATION [None]
